FAERS Safety Report 12807188 (Version 2)
Quarter: 2016Q4

REPORT INFORMATION
  Report Type: Report from Study
  Country: IT (occurrence: IT)
  Receive Date: 20161004
  Receipt Date: 20161006
  Transmission Date: 20170207
  Serious: Yes (Hospitalization, Other)
  Sender: FDA-Public Use
  Company Number: IT-TEVA-696354ACC

PATIENT
  Age: 46 Year
  Sex: Female

DRUGS (3)
  1. OCTREOTIDE. [Suspect]
     Active Substance: OCTREOTIDE
     Indication: NEUROENDOCRINE TUMOUR
     Route: 030
     Dates: start: 20160830
  2. METFORMIN [Suspect]
     Active Substance: METFORMIN HYDROCHLORIDE
     Indication: NEUROENDOCRINE TUMOUR
     Dosage: 500 MILLIGRAM DAILY;
     Route: 048
     Dates: start: 20160830, end: 20160910
  3. EVEROLIMUS [Suspect]
     Active Substance: EVEROLIMUS
     Indication: NEUROENDOCRINE TUMOUR
     Dosage: 10 MILLIGRAM DAILY;
     Route: 048
     Dates: start: 20160830, end: 20160910

REACTIONS (3)
  - Abdominal pain [Recovering/Resolving]
  - Blood bilirubin increased [Recovering/Resolving]
  - Liver function test abnormal [Recovering/Resolving]

NARRATIVE: CASE EVENT DATE: 20160909
